FAERS Safety Report 5158702-8 (Version None)
Quarter: 2006Q4

REPORT INFORMATION
  Report Type: 
  Country: None (occurrence: None)
  Receive Date: 20061128
  Receipt Date: 20060928
  Transmission Date: 20070319
  Serious: Yes (Other)
  Sender: FDA-Public Use
  Company Number: US-GLAXOSMITHKLINE-A0621791A

PATIENT
  Age: 65 Year
  Sex: Female

DRUGS (19)
  1. REQUIP [Suspect]
     Indication: RESTLESS LEGS SYNDROME
     Dosage: .5MG PER DAY
     Route: 048
     Dates: start: 20060401, end: 20060921
  2. PREVACID [Concomitant]
     Indication: GASTROOESOPHAGEAL REFLUX DISEASE
     Dosage: 30MG PER DAY
     Route: 048
  3. THYROID TAB [Concomitant]
     Indication: HYPOTHYROIDISM
     Dosage: 30MG PER DAY
     Route: 048
  4. ALLEGRA [Concomitant]
     Indication: HYPERSENSITIVITY
     Dosage: 180MG PER DAY
     Route: 048
  5. ZIAC [Concomitant]
     Indication: HYPERTENSION
  6. SINGULAIR [Concomitant]
     Indication: ASTHMA
     Dosage: 10MG PER DAY
  7. PULMICORT [Concomitant]
     Indication: ASTHMA
     Dosage: 2PUFF TWICE PER DAY
  8. ALBUTEROL [Concomitant]
     Indication: ASTHMA
  9. ZADITOR [Concomitant]
     Indication: HYPERSENSITIVITY
     Dosage: 1DROP IN THE MORNING
     Route: 047
  10. FOLIC ACID [Concomitant]
     Dosage: 800MCG PER DAY
  11. SENIOR MULTIVITAMIN [Concomitant]
     Dosage: 1TAB PER DAY
  12. CITRUCEL [Concomitant]
  13. VITAMIN D [Concomitant]
     Dosage: 1TAB TWICE PER DAY
  14. GLUCOSAMINE + CHONDROITIN [Concomitant]
     Dosage: 1TAB THREE TIMES PER DAY
  15. BETA-CAROTENE [Concomitant]
     Dosage: 25000IU TWICE PER DAY
  16. VITAMIN B-12 [Concomitant]
     Dosage: 1UNIT EVERY TWO WEEKS
  17. EVENING PRIMROSE [Concomitant]
     Dosage: 1000MG THREE TIMES PER DAY
  18. FISH OIL [Concomitant]
     Dosage: 1000MG TWICE PER DAY
  19. PROBIOTIC [Concomitant]

REACTIONS (6)
  - ABDOMINAL DISCOMFORT [None]
  - ABDOMINAL PAIN UPPER [None]
  - CONSTIPATION [None]
  - GALLBLADDER DISORDER [None]
  - INSOMNIA [None]
  - INTESTINAL OBSTRUCTION [None]
